FAERS Safety Report 10192347 (Version 1)
Quarter: 2014Q2

REPORT INFORMATION
  Report Type: Spontaneous
  Country: DE (occurrence: DE)
  Receive Date: 20140523
  Receipt Date: 20140523
  Transmission Date: 20141212
  Serious: Yes (Congenital Anomaly, Other)
  Sender: FDA-Public Use
  Company Number: DE-TEVA-481638GER

PATIENT
  Age: 1 Day
  Sex: Male

DRUGS (3)
  1. VENLAFAXIN RETARD [Suspect]
     Route: 064
  2. FOLS?URE [Concomitant]
     Route: 064
  3. L-THYROXIN [Concomitant]
     Route: 064

REACTIONS (9)
  - Agitation neonatal [Recovered/Resolved]
  - Developmental hip dysplasia [Unknown]
  - Atrial septal defect [Unknown]
  - Congenital mitral valve incompetence [Recovered/Resolved]
  - Congenital tricuspid valve incompetence [Recovered/Resolved]
  - Right ventricular hypertrophy [Recovering/Resolving]
  - Patent ductus arteriosus [Recovered/Resolved]
  - Myoclonus [Recovered/Resolved]
  - Neonatal respiratory distress syndrome [Recovered/Resolved]
